FAERS Safety Report 7958307-7 (Version None)
Quarter: 2011Q4

REPORT INFORMATION
  Report Type: 
  Country: None (occurrence: None)
  Receive Date: 20111205
  Receipt Date: 20111121
  Transmission Date: 20120403
  Serious: Yes (Death)
  Sender: FDA-Public Use
  Company Number: JP-ACTELION-A-CH2011-56524

PATIENT
  Sex: Male
  Weight: 46 kg

DRUGS (11)
  1. TRACLEER [Suspect]
     Dosage: 46.88 MG, BID
     Route: 048
     Dates: start: 20060207, end: 20060502
  2. TRACLEER [Suspect]
     Dosage: 62.5 MG, BID
     Route: 048
     Dates: start: 20060503, end: 20060717
  3. SILDENAFIL CITRATE [Concomitant]
  4. TRACLEER [Suspect]
     Dosage: 31.25 MG, BID
     Route: 048
     Dates: start: 20051224, end: 20060206
  5. BERAPROST SODIUM [Concomitant]
  6. TRACLEER [Suspect]
     Dosage: 62 MG, TID
     Route: 048
     Dates: start: 20060718, end: 20070807
  7. TRACLEER [Suspect]
     Indication: PULMONARY ARTERIAL HYPERTENSION
     Dosage: 125 MG, BID
     Route: 048
     Dates: start: 20070808, end: 20110713
  8. DIGOXIN [Concomitant]
  9. FUROSEMIDE [Concomitant]
  10. CILAZAPRIL MONOHYDRATE [Concomitant]
  11. WARFARIN SODIUM [Concomitant]

REACTIONS (4)
  - RIGHT VENTRICULAR HYPERTROPHY [None]
  - PULMONARY ARTERIAL HYPERTENSION [None]
  - SYNCOPE [None]
  - SUDDEN DEATH [None]
